FAERS Safety Report 19134840 (Version 2)
Quarter: 2021Q2

REPORT INFORMATION
  Report Type: Spontaneous
  Country: US (occurrence: US)
  Receive Date: 20210414
  Receipt Date: 20210421
  Transmission Date: 20210717
  Serious: Yes (Hospitalization, Other)
  Sender: FDA-Public Use
  Company Number: US-GW PHARMA-202104USGW01561

PATIENT

DRUGS (6)
  1. EPIDIOLEX [Suspect]
     Active Substance: CANNABIDIOL
     Indication: TUBEROUS SCLEROSIS COMPLEX
     Dosage: 500 MILLIGRAM, BID
     Route: 048
     Dates: start: 202103, end: 202103
  2. VIMPAT [Suspect]
     Active Substance: LACOSAMIDE
     Dosage: WEANING OFF
     Route: 065
  3. EPIDIOLEX [Suspect]
     Active Substance: CANNABIDIOL
     Indication: EPILEPSY
     Dosage: 830 MILLIGRAM, BID (TITRATING UP)
     Route: 048
     Dates: start: 202103
  4. DILANTIN [Concomitant]
     Active Substance: PHENYTOIN
     Indication: SEIZURE
     Dosage: UNK, STOPPED PRIOR TO SEIZURE
     Route: 065
  5. VIMPAT [Suspect]
     Active Substance: LACOSAMIDE
     Indication: PRODUCT USED FOR UNKNOWN INDICATION
     Dosage: UNK
     Route: 065
  6. DILANTIN [Concomitant]
     Active Substance: PHENYTOIN
     Dosage: UNK, BOLUS FOR TREATMENT
     Route: 065
     Dates: start: 202103

REACTIONS (1)
  - Seizure cluster [Unknown]

NARRATIVE: CASE EVENT DATE: 202103
